FAERS Safety Report 9826785 (Version 1)
Quarter: 2014Q1

REPORT INFORMATION
  Report Type: Spontaneous
  Country: US (occurrence: None)
  Receive Date: 20140116
  Receipt Date: 20140116
  Transmission Date: 20141002
  Serious: Yes (Other)
  Sender: FDA-Public Use
  Company Number: None

PATIENT
  Age: 86 Year
  Sex: Female

DRUGS (4)
  1. POTASSIUM [Suspect]
     Dosage: 1 TABLET
     Route: 048
     Dates: start: 20131014, end: 20131203
  2. MATOPALON [Concomitant]
  3. ADVER [Concomitant]
  4. SPANVA [Concomitant]

REACTIONS (3)
  - Medication residue present [None]
  - Large intestinal obstruction [None]
  - Product substitution issue [None]
